FAERS Safety Report 25417006 (Version 1)
Quarter: 2025Q2

REPORT INFORMATION
  Report Type: Spontaneous
  Country: GB (occurrence: GB)
  Receive Date: 20250610
  Receipt Date: 20250610
  Transmission Date: 20250716
  Serious: Yes (Other)
  Sender: MYLAN
  Company Number: GB-MHRA-TPP5121811C10905757YC1748868305551

PATIENT
  Age: 43 Year
  Sex: Male
  Weight: 80 kg

DRUGS (16)
  1. SERTRALINE HYDROCHLORIDE [Suspect]
     Active Substance: SERTRALINE HYDROCHLORIDE
     Indication: Ill-defined disorder
     Dosage: 50 MILLIGRAM, QD (1 DAILY)
     Dates: start: 20250514
  2. SERTRALINE HYDROCHLORIDE [Suspect]
     Active Substance: SERTRALINE HYDROCHLORIDE
     Dosage: 50 MILLIGRAM, QD (1 DAILY)
     Route: 065
     Dates: start: 20250514
  3. SERTRALINE HYDROCHLORIDE [Suspect]
     Active Substance: SERTRALINE HYDROCHLORIDE
     Dosage: 50 MILLIGRAM, QD (1 DAILY)
     Route: 065
     Dates: start: 20250514
  4. SERTRALINE HYDROCHLORIDE [Suspect]
     Active Substance: SERTRALINE HYDROCHLORIDE
     Dosage: 50 MILLIGRAM, QD (1 DAILY)
     Dates: start: 20250514
  5. PROPRANOLOL [Concomitant]
     Active Substance: PROPRANOLOL HYDROCHLORIDE
     Indication: Ill-defined disorder
  6. PROPRANOLOL [Concomitant]
     Active Substance: PROPRANOLOL HYDROCHLORIDE
     Route: 065
  7. PROPRANOLOL [Concomitant]
     Active Substance: PROPRANOLOL HYDROCHLORIDE
     Route: 065
  8. PROPRANOLOL [Concomitant]
     Active Substance: PROPRANOLOL HYDROCHLORIDE
  9. RAMIPRIL [Concomitant]
     Active Substance: RAMIPRIL
     Indication: Ill-defined disorder
     Dosage: 1 DOSAGE FORM, QD (TAKE ONE DAILY)
     Dates: start: 20231215
  10. RAMIPRIL [Concomitant]
     Active Substance: RAMIPRIL
     Dosage: 1 DOSAGE FORM, QD (TAKE ONE DAILY)
     Route: 065
     Dates: start: 20231215
  11. RAMIPRIL [Concomitant]
     Active Substance: RAMIPRIL
     Dosage: 1 DOSAGE FORM, QD (TAKE ONE DAILY)
     Route: 065
     Dates: start: 20231215
  12. RAMIPRIL [Concomitant]
     Active Substance: RAMIPRIL
     Dosage: 1 DOSAGE FORM, QD (TAKE ONE DAILY)
     Dates: start: 20231215
  13. EPIPEN [Concomitant]
     Active Substance: EPINEPHRINE
     Indication: Ill-defined disorder
  14. EPIPEN [Concomitant]
     Active Substance: EPINEPHRINE
     Route: 065
  15. EPIPEN [Concomitant]
     Active Substance: EPINEPHRINE
     Route: 065
  16. EPIPEN [Concomitant]
     Active Substance: EPINEPHRINE

REACTIONS (1)
  - Hallucination, auditory [Recovered/Resolved]
